FAERS Safety Report 22330115 (Version 1)
Quarter: 2023Q2

REPORT INFORMATION
  Report Type: Spontaneous
  Country: US (occurrence: None)
  Receive Date: 20230517
  Receipt Date: 20230517
  Transmission Date: 20230722
  Serious: No
  Sender: FDA-Public Use
  Company Number: US-ROCHE-3104023

PATIENT
  Sex: Female

DRUGS (5)
  1. ACTEMRA [Suspect]
     Active Substance: TOCILIZUMAB
     Indication: Rheumatoid arthritis
     Route: 042
  2. PLAQUENIL [Concomitant]
     Active Substance: HYDROXYCHLOROQUINE SULFATE
  3. ARAVA [Concomitant]
     Active Substance: LEFLUNOMIDE
  4. PREDNISONE [Concomitant]
     Active Substance: PREDNISONE
  5. CELEBREX [Concomitant]
     Active Substance: CELECOXIB

REACTIONS (2)
  - Joint swelling [Unknown]
  - Drug ineffective [Unknown]
